FAERS Safety Report 9478880 (Version 2)
Quarter: 2013Q3

REPORT INFORMATION
  Report Type: Spontaneous
  Country: US (occurrence: None)
  Receive Date: 20130823
  Receipt Date: 20130912
  Transmission Date: 20140515
  Serious: Yes (Hospitalization)
  Sender: FDA-Public Use
  Company Number: HYP201308-000043

PATIENT
  Age: 24 Year
  Sex: Female
  Weight: 63.9 kg

DRUGS (3)
  1. RAVICITI [Suspect]
     Indication: AMINO ACID METABOLISM DISORDER
     Dosage: 1.5 ML, TID, ORAL
     Route: 048
     Dates: start: 20130620, end: 20130621
  2. ARGININE HCL [Concomitant]
  3. PHENOBARBITOL [Concomitant]

REACTIONS (7)
  - Hyperammonaemia [None]
  - Hypokalaemia [None]
  - Hypophosphataemia [None]
  - Hypocalcaemia [None]
  - Hypomagnesaemia [None]
  - Acidosis [None]
  - Myalgia [None]
